FAERS Safety Report 7445740-5 (Version None)
Quarter: 2011Q2

REPORT INFORMATION
  Report Type: 
  Country: None (occurrence: None)
  Receive Date: 20110429
  Receipt Date: 20110118
  Transmission Date: 20111010
  Serious: No
  Sender: FDA-Public Use
  Company Number: US-ASTRAZENECA-2010SE16972

PATIENT
  Age: 83 Year
  Sex: Female

DRUGS (4)
  1. NEXIUM [Suspect]
     Indication: DYSPHAGIA
     Route: 048
  2. OMEPRAZOLE MAGNESIUM [Suspect]
     Route: 048
  3. CLONAZEPAM [Concomitant]
     Indication: TREMOR
  4. PREDNISONE [Concomitant]

REACTIONS (7)
  - DRUG DOSE OMISSION [None]
  - SARCOIDOSIS [None]
  - DRUG INEFFECTIVE [None]
  - REGURGITATION [None]
  - DYSPHAGIA [None]
  - PNEUMONIA [None]
  - ASTHMA [None]
